FAERS Safety Report 8121218-0 (Version None)
Quarter: 2012Q1

REPORT INFORMATION
  Report Type: 
  Country: None (occurrence: None)
  Receive Date: 20120208
  Receipt Date: 20120126
  Transmission Date: 20120608
  Serious: Yes (Hospitalization, Other)
  Sender: FDA-Public Use
  Company Number: MX-SANOFI-AVENTIS-2012SA005856

PATIENT
  Age: 27 Year
  Sex: Female
  Weight: 57 kg

DRUGS (7)
  1. LANTUS [Suspect]
     Dosage: DOSE: 6-7U
     Route: 058
     Dates: start: 20110601, end: 20110801
  2. SHORANT [Suspect]
     Indication: TYPE 1 DIABETES MELLITUS
     Dosage: DOSE: 6 IU MORNING-7 IU NIGHT
     Route: 058
     Dates: start: 20040101, end: 20110601
  3. SHORANT [Suspect]
     Dosage: DOSE: 9-10-9 IU
     Route: 058
     Dates: start: 20110601, end: 20110801
  4. LANTUS [Suspect]
     Indication: TYPE 1 DIABETES MELLITUS
     Dosage: DOSE: 6-7U
     Route: 058
     Dates: start: 20040101, end: 20110601
  5. SHORANT [Suspect]
     Dosage: DOSE: 4-6-4 IU
     Route: 058
     Dates: start: 20110801
  6. LANTUS [Suspect]
     Dosage: DOSE: 6-7U
     Route: 058
     Dates: start: 20110801
  7. VITAMINS WITH MINERALS [Concomitant]
     Indication: VITAMIN SUPPLEMENTATION
     Dates: start: 20110101

REACTIONS (4)
  - MATERNAL EXPOSURE DURING PREGNANCY [None]
  - HYPERGLYCAEMIA [None]
  - ABORTION THREATENED [None]
  - URINARY TRACT INFECTION [None]
